FAERS Safety Report 10956795 (Version 1)
Quarter: 2015Q1

REPORT INFORMATION
  Report Type: Spontaneous
  Country: US (occurrence: None)
  Receive Date: 20150226
  Receipt Date: 20150226
  Transmission Date: 20150721
  Serious: Yes (Other)
  Sender: FDA-Public Use
  Company Number: TPA2013A07533

PATIENT
  Age: 72 Year
  Sex: Male
  Weight: 81.6 kg

DRUGS (9)
  1. METFORMIN [Concomitant]
     Active Substance: METFORMIN HYDROCHLORIDE
  2. PRANDIN (REPAGLINIDE) [Concomitant]
  3. BYETTA (EXENATIDE) [Concomitant]
  4. NOVOLOG [Concomitant]
     Active Substance: INSULIN ASPART
  5. ACTOPLUS MET [Suspect]
     Active Substance: METFORMIN HYDROCHLORIDE\PIOGLITAZONE HYDROCHLORIDE
     Indication: TYPE 2 DIABETES MELLITUS
     Route: 048
     Dates: start: 200610, end: 201111
  6. LANTUS [Concomitant]
     Active Substance: INSULIN GLARGINE
  7. ACTOS [Suspect]
     Active Substance: PIOGLITAZONE HYDROCHLORIDE
     Indication: TYPE 2 DIABETES MELLITUS
     Route: 048
     Dates: start: 200610, end: 201109
  8. LEVEMIR [Concomitant]
     Active Substance: INSULIN DETEMIR
  9. AMARYL [Concomitant]
     Active Substance: GLIMEPIRIDE

REACTIONS (1)
  - Bladder cancer [None]

NARRATIVE: CASE EVENT DATE: 20111108
